FAERS Safety Report 21229934 (Version 1)
Quarter: 2022Q3

REPORT INFORMATION
  Report Type: Spontaneous
  Country: US (occurrence: US)
  Receive Date: 20220818
  Receipt Date: 20220818
  Transmission Date: 20221027
  Serious: No
  Sender: FDA-Public Use
  Company Number: US-SA-SAC20220811001420

PATIENT
  Age: 11 Year
  Sex: Female
  Weight: 48 kg

DRUGS (5)
  1. DUPIXENT [Suspect]
     Active Substance: DUPILUMAB
     Indication: Dermatitis atopic
     Dosage: 400 MG 1X
     Route: 058
     Dates: start: 20220801, end: 20220801
  2. DUPIXENT [Suspect]
     Active Substance: DUPILUMAB
     Dosage: 200 MG, QOW
     Route: 058
  3. TRIAMCINOLONE ACETONIDE [Concomitant]
     Active Substance: TRIAMCINOLONE ACETONIDE
  4. CLARITIN [Concomitant]
     Active Substance: LORATADINE
  5. HYDROXYZINE HYDROCHLORIDE [Concomitant]
     Active Substance: HYDROXYZINE HYDROCHLORIDE

REACTIONS (6)
  - Skin fissures [Unknown]
  - Dry skin [Unknown]
  - Scratch [Unknown]
  - Pruritus [Unknown]
  - Skin exfoliation [Unknown]
  - Drug ineffective [Unknown]
